FAERS Safety Report 8486619-X (Version None)
Quarter: 2012Q3

REPORT INFORMATION
  Report Type: 
  Country: None (occurrence: None)
  Receive Date: 20120703
  Receipt Date: 20120627
  Transmission Date: 20120928
  Serious: Yes (Other)
  Sender: FDA-Public Use
  Company Number: US-ROCHE-1082589

PATIENT
  Sex: Male

DRUGS (1)
  1. ERIVEDGE [Suspect]
     Indication: BASAL CELL CARCINOMA

REACTIONS (8)
  - FEEDING DISORDER [None]
  - BLOOD GLUCOSE INCREASED [None]
  - NEOPLASM [None]
  - COGNITIVE DISORDER [None]
  - DYSGEUSIA [None]
  - ALOPECIA [None]
  - MUSCLE SPASMS [None]
  - SLEEP DISORDER [None]
